FAERS Safety Report 5806847-9 (Version None)
Quarter: 2008Q3

REPORT INFORMATION
  Report Type: 
  Country: None (occurrence: None)
  Receive Date: 20080711
  Receipt Date: 20080708
  Transmission Date: 20090109
  Serious: Yes (Hospitalization)
  Sender: FDA-Public Use
  Company Number: US-BRISTOL-MYERS SQUIBB COMPANY-14253983

PATIENT
  Age: 76 Year
  Sex: Male
  Weight: 83 kg

DRUGS (8)
  1. CARBOPLATIN [Suspect]
     Indication: MALIGNANT MELANOMA
     Dosage: 1 DOSAGEFORM = AUC6,
     Route: 042
     Dates: start: 20080616, end: 20080616
  2. TAXOL [Suspect]
     Indication: MALIGNANT MELANOMA
     Route: 042
     Dates: start: 20080616, end: 20080616
  3. CP-870,893 [Suspect]
     Indication: MALIGNANT MELANOMA
     Dosage: THE PATIENT RECEIVED 0.2 MG/KG THEN O.1 MG/KG EVERY THREE WEEKS FROM 23-APR-2008 TO 16-JUN-2008.
     Dates: start: 20080423
  4. CARDURA [Concomitant]
     Route: 048
  5. DALMANE [Concomitant]
     Route: 048
  6. IBUPROFEN [Concomitant]
     Route: 048
  7. PROSCAR [Concomitant]
  8. ZOFRAN [Concomitant]

REACTIONS (2)
  - ATRIAL FLUTTER [None]
  - HYPOTENSION [None]
